FAERS Safety Report 23780962 (Version 2)
Quarter: 2024Q2

REPORT INFORMATION
  Report Type: Other
  Country: GT (occurrence: GT)
  Receive Date: 20240425
  Receipt Date: 20240508
  Transmission Date: 20240716
  Serious: Yes (Death, Hospitalization, Other)
  Sender: FDA-Public Use
  Company Number: GT-TOLMAR, INC.-24GT048259

PATIENT
  Age: 86 Year
  Sex: Male

DRUGS (3)
  1. ELIGARD [Suspect]
     Active Substance: LEUPROLIDE ACETATE
     Indication: Prostate cancer
     Dosage: 45 MILLIGRAM, Q 6 MONTH
     Route: 058
     Dates: start: 20210316
  2. ELIGARD [Suspect]
     Active Substance: LEUPROLIDE ACETATE
     Indication: Prostate cancer
     Dosage: UNK
  3. RADIATION THERAPY [Concomitant]
     Active Substance: RADIATION THERAPY
     Indication: Prostate cancer

REACTIONS (4)
  - Death [Fatal]
  - General physical health deterioration [Unknown]
  - Metastases to bone [Not Recovered/Not Resolved]
  - Amnesia [Not Recovered/Not Resolved]

NARRATIVE: CASE EVENT DATE: 20240101
